FAERS Safety Report 10048249 (Version 4)
Quarter: 2016Q1

REPORT INFORMATION
  Report Type: Spontaneous
  Country: US (occurrence: US)
  Receive Date: 20140331
  Receipt Date: 20160205
  Transmission Date: 20160525
  Serious: Yes (Hospitalization, Other)
  Sender: FDA-Public Use
  Company Number: US-PFIZER INC-2014089029

PATIENT
  Age: 60 Year
  Sex: Male
  Weight: 90.7 kg

DRUGS (1)
  1. LYRICA [Suspect]
     Active Substance: PREGABALIN
     Indication: DIABETIC NEUROPATHY
     Dosage: 150 MG, 3X/DAY
     Route: 048
     Dates: start: 2007

REACTIONS (7)
  - Myocardial infarction [Unknown]
  - Malaise [Unknown]
  - Paraesthesia [Unknown]
  - Cardiac disorder [Unknown]
  - Pain in extremity [Unknown]
  - Coronary artery disease [Unknown]
  - Burning sensation [Unknown]
